FAERS Safety Report 8769775 (Version 4)
Quarter: 2013Q2

REPORT INFORMATION
  Report Type: Report from Study
  Country: JP (occurrence: JP)
  Receive Date: 20120905
  Receipt Date: 20130520
  Transmission Date: 20140414
  Serious: Yes (Other)
  Sender: FDA-Public Use
  Company Number: JP-VERTEX PHARMACEUTICAL INC.-AE-2012-008464

PATIENT
  Age: 58 Year
  Sex: Male

DRUGS (12)
  1. VX-950 (TELAPREVIR) [Suspect]
     Indication: CHRONIC HEPATITIS C
     Dosage: 2250 MG, QD
     Route: 048
     Dates: start: 20120216, end: 20120222
  2. VX-950 (TELAPREVIR) [Suspect]
     Dosage: 1500 MG, QD
     Route: 048
     Dates: start: 20120223, end: 20120314
  3. VX-950 (TELAPREVIR) [Suspect]
     Dosage: 750 MG, QD
     Route: 048
     Dates: start: 20120315, end: 20120509
  4. REBETOL [Suspect]
     Indication: CHRONIC HEPATITIS C
     Dosage: 600 MG, QD
     Route: 048
     Dates: start: 20120216, end: 20120307
  5. REBETOL [Suspect]
     Dosage: 400 MG, QD
     Route: 048
     Dates: start: 20120308, end: 20120322
  6. REBETOL [Suspect]
     Dosage: 200 MG, QD
     Route: 048
     Dates: start: 20120323, end: 20120510
  7. REBETOL [Suspect]
     Dosage: 400 MG, QD
     Route: 048
     Dates: start: 20120511, end: 20120613
  8. REBETOL [Suspect]
     Dosage: 200 MG, QD
     Route: 048
     Dates: start: 20120614
  9. PEGINTRON [Suspect]
     Indication: CHRONIC HEPATITIS C
     Dosage: 1.5 UNK, QW
     Route: 058
     Dates: start: 20120216
  10. MEIACT [Concomitant]
     Dosage: 300 MG, QD
     Route: 048
     Dates: start: 20120705, end: 20120718
  11. REBAMIPIDE [Concomitant]
     Dosage: 100 MG, QD PRN
     Route: 048
     Dates: start: 20120705, end: 20120711
  12. ISODINE [Concomitant]
     Dosage: UNK, QD
     Route: 051
     Dates: start: 20120705, end: 20120718

REACTIONS (2)
  - Eczema [Recovered/Resolved]
  - White blood cell count decreased [Recovered/Resolved]
